FAERS Safety Report 16974698 (Version 10)
Quarter: 2022Q4

REPORT INFORMATION
  Report Type: Spontaneous
  Country: CA (occurrence: CA)
  Receive Date: 20191030
  Receipt Date: 20221121
  Transmission Date: 20230113
  Serious: Yes (Other)
  Sender: FDA-Public Use
  Company Number: CA-CELLTRION INC.-2019CA020192

PATIENT

DRUGS (8)
  1. INFLECTRA [Suspect]
     Active Substance: INFLIXIMAB-DYYB
     Indication: Rheumatoid arthritis
     Dosage: 400 MG, Q (EVERY) 2, 6 WEEKS THEN EVERY 8 WEEKS
     Route: 042
     Dates: start: 20190327
  2. INFLECTRA [Suspect]
     Active Substance: INFLIXIMAB-DYYB
     Dosage: 400 MG, Q (EVERY) 2, 6 WEEKS THEN EVERY 8 WEEKS
     Route: 042
     Dates: start: 20210513
  3. INFLECTRA [Suspect]
     Active Substance: INFLIXIMAB-DYYB
     Dosage: 400 MG, Q (EVERY) 2, 6 WEEKS THEN EVERY 8 WEEKS
     Route: 042
     Dates: start: 20211027
  4. INFLECTRA [Suspect]
     Active Substance: INFLIXIMAB-DYYB
     Dosage: 5 MG/KG, EVERY 6-8 WEEKS
     Route: 042
     Dates: start: 20211208
  5. INFLECTRA [Suspect]
     Active Substance: INFLIXIMAB-DYYB
     Dosage: 600 MG, EVERY 6-8 WEEK
     Route: 042
  6. INFLECTRA [Suspect]
     Active Substance: INFLIXIMAB-DYYB
     Dosage: 500 MG,EVERY 6-8 WEEK
     Route: 042
  7. INFLECTRA [Suspect]
     Active Substance: INFLIXIMAB-DYYB
     Dosage: 5 MG/KG,EVERY 6-8 WEEKS
     Route: 042
     Dates: start: 20220308
  8. MYRBETRIQ [Concomitant]
     Active Substance: MIRABEGRON
     Indication: Bladder disorder
     Dosage: UNK

REACTIONS (15)
  - Knee arthroplasty [Unknown]
  - Nephrolithiasis [Unknown]
  - Glaucoma [Unknown]
  - Lower respiratory tract infection [Unknown]
  - Bladder disorder [Unknown]
  - Sinusitis [Unknown]
  - Arthralgia [Not Recovered/Not Resolved]
  - Oral herpes [Recovering/Resolving]
  - Blood pressure fluctuation [Recovered/Resolved]
  - Eye disorder [Not Recovered/Not Resolved]
  - Pain [Not Recovered/Not Resolved]
  - Arthritis [Unknown]
  - COVID-19 [Unknown]
  - Incorrect dose administered [Unknown]
  - Off label use [Unknown]

NARRATIVE: CASE EVENT DATE: 20190327
